FAERS Safety Report 9767464 (Version 1)
Quarter: 2013Q4

REPORT INFORMATION
  Report Type: Spontaneous
  Country: US (occurrence: None)
  Receive Date: 20131213
  Receipt Date: 20131213
  Transmission Date: 20140711
  Serious: Yes (Death)
  Sender: FDA-Public Use
  Company Number: US-2013-2917

PATIENT
  Sex: 0

DRUGS (3)
  1. NAVELBINE [Suspect]
     Indication: NON-SMALL CELL LUNG CANCER
     Dosage: 15 OR 24MG/M2, DAY 1 + 8 OR DAY 8
  2. CISPLATIN [Suspect]
     Indication: NON-SMALL CELL LUNG CANCER
     Dosage: 60 MG/M2, DAY, CYCLICAL +29 (1/21)
  3. GEMCITABINE (GEMCITABINE) [Suspect]
     Indication: NON-SMALL CELL LUNG CANCER
     Dosage: 200 OR 1000MG/M2, CYCLICAL (1/21)

REACTIONS (6)
  - Non-small cell lung cancer [None]
  - Malignant neoplasm progression [None]
  - Toxicity to various agents [None]
  - Haematotoxicity [None]
  - Leukopenia [None]
  - Peripheral ischaemia [None]
